FAERS Safety Report 16489988 (Version 1)
Quarter: 2019Q2

REPORT INFORMATION
  Report Type: Spontaneous
  Country: US (occurrence: US)
  Receive Date: 20190628
  Receipt Date: 20190628
  Transmission Date: 20190711
  Serious: No
  Sender: FDA-Public Use
  Company Number: US-ACCORD-073599

PATIENT
  Age: 39 Year
  Sex: Female
  Weight: 54.43 kg

DRUGS (2)
  1. CLONAZEPAM ACCORD [Suspect]
     Active Substance: CLONAZEPAM
     Indication: ANXIETY
     Dosage: DOSE: 0.5 MG TWICE DAILY THEN SWITCHED TO 1 MG IN THE MORNING
  2. MAGNESIUM HYDROXIDE. [Concomitant]
     Active Substance: MAGNESIUM HYDROXIDE
     Indication: ANXIETY

REACTIONS (3)
  - Anxiety [Not Recovered/Not Resolved]
  - Drug ineffective [Unknown]
  - Drug screen negative [Unknown]
